FAERS Safety Report 10265575 (Version 1)
Quarter: 2014Q2

REPORT INFORMATION
  Report Type: Spontaneous
  Country: US (occurrence: None)
  Receive Date: 20140624
  Receipt Date: 20140624
  Transmission Date: 20141212
  Serious: Yes (Other)
  Sender: FDA-Public Use
  Company Number: ADR-2014-01059

PATIENT
  Age: 43 Year
  Sex: Female

DRUGS (1)
  1. BACLOFEN [Suspect]
     Indication: MUSCLE SPASTICITY

REACTIONS (6)
  - Sarcoidosis [None]
  - Muscle spasms [None]
  - Small fibre neuropathy [None]
  - Neurological symptom [None]
  - Spinal disorder [None]
  - Unevaluable event [None]
